FAERS Safety Report 6613806-5 (Version None)
Quarter: 2010Q1

REPORT INFORMATION
  Report Type: 
  Country: None (occurrence: None)
  Receive Date: 20100304
  Receipt Date: 20100223
  Transmission Date: 20100710
  Serious: Yes (Death)
  Sender: FDA-Public Use
  Company Number: US-BAXTER-2010BH001626

PATIENT
  Age: 74 Year
  Sex: Female

DRUGS (1)
  1. HEPARIN SODIUM INJECTION [Suspect]
     Indication: ANEURYSM REPAIR
     Route: 065
     Dates: start: 20070206, end: 20070201

REACTIONS (8)
  - EMBOLISM [None]
  - EXTREMITY NECROSIS [None]
  - HEPARIN-INDUCED THROMBOCYTOPENIA [None]
  - HYPERSENSITIVITY [None]
  - PERIPHERAL EMBOLISM [None]
  - RENAL EMBOLISM [None]
  - RENAL FAILURE ACUTE [None]
  - SHOCK [None]
